FAERS Safety Report 16778530 (Version 10)
Quarter: 2020Q1

REPORT INFORMATION
  Report Type: Spontaneous
  Country: DE (occurrence: DE)
  Receive Date: 20190906
  Receipt Date: 20200109
  Transmission Date: 20200409
  Serious: Yes (Hospitalization, Other)
  Sender: FDA-Public Use
  Company Number: DE-AUROBINDO-AUR-APL-2019-057939

PATIENT
  Age: 60 Year
  Sex: Female
  Weight: 103 kg

DRUGS (20)
  1. OMEGA 3 [Concomitant]
     Active Substance: OMEGA-3 FATTY ACIDS
     Indication: PRODUCT USED FOR UNKNOWN INDICATION
     Dosage: UNK
     Route: 065
  2. VALDOXAN [Concomitant]
     Active Substance: AGOMELATINE
     Indication: PRODUCT USED FOR UNKNOWN INDICATION
     Dosage: 25 MILLIGRAM, ONCE A DAY IN MORNING
     Route: 065
     Dates: start: 20120116
  3. IBUPROFEN RATIOPHARM [Concomitant]
     Indication: PAIN
     Dosage: 400 MILLIGRAM, ONCE A DAY, IN THE MORNING
     Route: 065
  4. ZINC. [Concomitant]
     Active Substance: ZINC
     Indication: PRODUCT USED FOR UNKNOWN INDICATION
     Dosage: UNK
     Route: 065
  5. VALSARTAN. [Suspect]
     Active Substance: VALSARTAN
     Indication: HYPERTENSION
     Dosage: 92.5 MILLIGRAM IN THE MORNINGS
     Route: 048
     Dates: start: 2006
  6. VALSARTAN. [Suspect]
     Active Substance: VALSARTAN
     Dosage: 1 DOSAGE FORM, ONCE A DAY, (80/12.5 MG)
     Route: 065
     Dates: start: 2006
  7. VALSARTAN 1A PHARMA [Suspect]
     Active Substance: VALSARTAN
     Dosage: 1 DOSAGE FORM, ONCE A DAY (80/12.5 MG)
     Route: 065
     Dates: start: 20141202, end: 201808
  8. PROPOFOL. [Suspect]
     Active Substance: PROPOFOL
     Indication: PRODUCT USED FOR UNKNOWN INDICATION
     Dosage: UNK
     Route: 065
  9. IODIDE [Suspect]
     Active Substance: IODINE
     Indication: GOITRE
  10. VALSARTAN 1A PHARMA [Suspect]
     Active Substance: VALSARTAN
     Indication: PRODUCT USED FOR UNKNOWN INDICATION
     Dosage: 80 MILLIGRAM, ONCE A DAY, IN THE MORNING
     Route: 065
     Dates: start: 20141202, end: 201808
  11. DOXYCYCLINE. [Suspect]
     Active Substance: DOXYCYCLINE
     Indication: PRODUCT USED FOR UNKNOWN INDICATION
     Dosage: UNK
     Route: 065
  12. CLEMIZOLE PENICILLIN [Suspect]
     Active Substance: CLEMIZOLE PENICILLIN
     Indication: PRODUCT USED FOR UNKNOWN INDICATION
     Dosage: UNK
     Route: 065
  13. VOTUM [Concomitant]
     Indication: PRODUCT USED FOR UNKNOWN INDICATION
     Dosage: 0.5 DOSAGE FORM, ONCE A DAY (10MG) MORNING
     Route: 065
     Dates: start: 2005
  14. HEPARIN [Concomitant]
     Active Substance: HEPARIN SODIUM
     Indication: LYMPHADENECTOMY
     Dosage: UNK
     Route: 005
  15. DICLOFENAC [Suspect]
     Active Substance: DICLOFENAC
     Indication: PRODUCT USED FOR UNKNOWN INDICATION
     Dosage: UNK
     Route: 065
  16. CLARITHROMYCIN. [Suspect]
     Active Substance: CLARITHROMYCIN
     Indication: PRODUCT USED FOR UNKNOWN INDICATION
     Dosage: UNK
     Route: 065
  17. PANTOPRAZOL HEXAL [Suspect]
     Active Substance: PANTOPRAZOLE
     Indication: PRODUCT USED FOR UNKNOWN INDICATION
     Dosage: 40 MILLIGRAM, ONCE A DAY, IN THE MORNING
     Route: 065
  18. IODIDE [Suspect]
     Active Substance: IODINE
     Indication: GOITRE
     Dosage: 200 MILLIGRAM, ONCE A DAY SINCE YEARS (MORNING)
     Route: 048
     Dates: start: 2000
  19. VALSARTAN+HYDROCHLOROTHIAZIDE FILM-COATED TABLET [Suspect]
     Active Substance: HYDROCHLOROTHIAZIDE\VALSARTAN
     Indication: PRODUCT USED FOR UNKNOWN INDICATION
     Dosage: 1 DOSAGE FORM, ONCE A DAY, IN THE MORNING
     Route: 065
     Dates: start: 20141202
  20. HYDROCHLOROTHIAZIDE. [Concomitant]
     Active Substance: HYDROCHLOROTHIAZIDE
     Indication: HYPERTENSION
     Dosage: 12.5 MILLIGRAM, 125 OT
     Route: 048

REACTIONS (34)
  - Drug hypersensitivity [Unknown]
  - Pollakiuria [Recovering/Resolving]
  - Asthenia [Unknown]
  - Pain [Recovering/Resolving]
  - Polyarthritis [Not Recovered/Not Resolved]
  - Vaginal haemorrhage [Not Recovered/Not Resolved]
  - Constipation [Unknown]
  - Fistula discharge [Recovering/Resolving]
  - Spinal cord disorder [Unknown]
  - Dysuria [Recovered/Resolved]
  - Bladder spasm [Unknown]
  - Polyuria [Recovering/Resolving]
  - Back pain [Unknown]
  - Spinal pain [Unknown]
  - Carpal tunnel syndrome [Unknown]
  - Osteoarthritis [Not Recovered/Not Resolved]
  - Lipoedema [Unknown]
  - Fatigue [Unknown]
  - Urinary tract infection [Unknown]
  - Lymphoedema [Unknown]
  - Cough [Unknown]
  - Myelopathy [Unknown]
  - Sleep disorder [Unknown]
  - Endometrial cancer [Recovered/Resolved]
  - Procedural complication [Unknown]
  - Incontinence [Unknown]
  - Micturition urgency [Unknown]
  - Sneezing [Unknown]
  - Anal incontinence [Recovering/Resolving]
  - Urinary tract infection enterococcal [Recovered/Resolved]
  - Thrombosis [Unknown]
  - Urinary incontinence [Recovering/Resolving]
  - Fibromyalgia [Unknown]
  - General physical health deterioration [Unknown]

NARRATIVE: CASE EVENT DATE: 2006
